FAERS Safety Report 21365856 (Version 2)
Quarter: 2022Q4

REPORT INFORMATION
  Report Type: Spontaneous
  Country: PL (occurrence: PL)
  Receive Date: 20220922
  Receipt Date: 20221007
  Transmission Date: 20230112
  Serious: Yes (Hospitalization, Other)
  Sender: FDA-Public Use
  Company Number: PL-TEVA-2022-PL-2074759

PATIENT
  Age: 16 Year
  Sex: Female

DRUGS (7)
  1. QUETIAPINE [Suspect]
     Active Substance: QUETIAPINE
     Indication: Bipolar disorder
     Dosage: IN THE EVENING; EXTENDED RELEASE
     Route: 065
     Dates: start: 202010
  2. MORPHINE [Suspect]
     Active Substance: MORPHINE
     Indication: Drug abuse
     Route: 065
  3. AMPHETAMINE [Suspect]
     Active Substance: AMPHETAMINE
     Indication: Drug abuse
     Route: 065
  4. METHAMPHETAMINE [Suspect]
     Active Substance: METHAMPHETAMINE
     Indication: Drug abuse
     Route: 042
  5. CODEINE [Suspect]
     Active Substance: CODEINE
     Indication: Drug abuse
     Route: 065
  6. ARIPIPRAZOLE [Suspect]
     Active Substance: ARIPIPRAZOLE
     Indication: Bipolar disorder
     Dosage: IN THE MORNING
     Route: 065
     Dates: start: 202010
  7. PREGABALIN [Suspect]
     Active Substance: PREGABALIN
     Indication: Bipolar disorder
     Dosage: IN THE EVENING
     Route: 065
     Dates: start: 202010

REACTIONS (4)
  - Inflammation [Recovered/Resolved]
  - Toxicity to various agents [Unknown]
  - Drug abuse [Unknown]
  - Drug ineffective [Unknown]
